FAERS Safety Report 8799940 (Version 1)
Quarter: 2012Q4

REPORT INFORMATION
  Report Type: Spontaneous
  Country: US (occurrence: None)
  Receive Date: 20120918
  Receipt Date: 20120918
  Transmission Date: 20130627
  Serious: Yes (Life-Threatening, Hospitalization)
  Sender: FDA-Public Use
  Company Number: None

PATIENT
  Age: 87 Year
  Sex: Female

DRUGS (3)
  1. FUROSEMIDE [Suspect]
     Indication: EDEMA
  2. AMIODARONE [Concomitant]
  3. LISINOPRIL [Concomitant]

REACTIONS (3)
  - Dehydration [None]
  - Renal failure acute [None]
  - Hepatic failure [None]
